FAERS Safety Report 14772643 (Version 3)
Quarter: 2018Q2

REPORT INFORMATION
  Report Type: Report from Study
  Country: US (occurrence: US)
  Receive Date: 20180418
  Receipt Date: 20180629
  Transmission Date: 20180711
  Serious: Yes (Death, Hospitalization, Other)
  Sender: FDA-Public Use
  Company Number: US-BRISTOL-MYERS SQUIBB COMPANY-BMS-2018-034022

PATIENT
  Age: 72 Year
  Sex: Male
  Weight: 80.4 kg

DRUGS (2)
  1. NIVOLUMAB [Suspect]
     Active Substance: NIVOLUMAB
     Indication: PANCREATIC CARCINOMA
     Dosage: 480 MG, UNK
     Route: 042
     Dates: start: 20180215
  2. IPILIMUMAB [Suspect]
     Active Substance: IPILIMUMAB
     Indication: PANCREATIC CARCINOMA
     Dosage: 89 MG, UNK
     Route: 042
     Dates: start: 20180215

REACTIONS (5)
  - Abdominal pain [Unknown]
  - Retroperitoneal neoplasm metastatic [Unknown]
  - Death [Fatal]
  - Thrombocytosis [Unknown]
  - Dyspnoea [Recovered/Resolved]

NARRATIVE: CASE EVENT DATE: 20180310
